FAERS Safety Report 21613959 (Version 2)
Quarter: 2023Q1

REPORT INFORMATION
  Report Type: Report from Study
  Country: US (occurrence: US)
  Receive Date: 20221118
  Receipt Date: 20230118
  Transmission Date: 20230418
  Serious: No
  Sender: FDA-Public Use
  Company Number: US-ABBVIE-22K-163-4470418-00

PATIENT
  Sex: Female

DRUGS (3)
  1. HUMIRA [Suspect]
     Active Substance: ADALIMUMAB
     Indication: Crohn^s disease
     Dosage: STRENGTH 40 MG
     Route: 058
     Dates: start: 202201
  2. HUMIRA [Suspect]
     Active Substance: ADALIMUMAB
     Dosage: STRENGTH 40 MG?DAY 1
     Route: 058
  3. HUMIRA [Suspect]
     Active Substance: ADALIMUMAB
     Dosage: DAY 15
     Route: 058

REACTIONS (11)
  - Abdominal pain [Recovered/Resolved]
  - Crohn^s disease [Unknown]
  - Increased tendency to bruise [Unknown]
  - Abdominal distension [Recovered/Resolved]
  - Constipation [Unknown]
  - Frequent bowel movements [Unknown]
  - Injection site bruising [Not Recovered/Not Resolved]
  - Depressed mood [Not Recovered/Not Resolved]
  - Asthenia [Not Recovered/Not Resolved]
  - Arthralgia [Not Recovered/Not Resolved]
  - Gastrointestinal sounds abnormal [Unknown]

NARRATIVE: CASE EVENT DATE: 20220101
